FAERS Safety Report 5705836-2 (Version None)
Quarter: 2008Q2

REPORT INFORMATION
  Report Type: 
  Country: None (occurrence: None)
  Receive Date: 20080415
  Receipt Date: 20080402
  Transmission Date: 20081010
  Serious: Yes (Other)
  Sender: FDA-Public Use
  Company Number: NL-SANOFI-SYNTHELABO-A01200803692

PATIENT
  Age: 73 Year
  Sex: Male

DRUGS (3)
  1. OXALIPLATIN [Suspect]
     Indication: COLORECTAL CANCER
     Dosage: UNK
     Route: 065
     Dates: start: 20070101, end: 20070101
  2. AVASTIN [Suspect]
     Dosage: UNK
     Route: 065
     Dates: start: 20070101, end: 20070101
  3. XELODA [Suspect]
     Dosage: UNK
     Route: 048
     Dates: start: 20070101, end: 20070101

REACTIONS (1)
  - MYOCARDIAL INFARCTION [None]
